FAERS Safety Report 7035755-3 (Version None)
Quarter: 2010Q4

REPORT INFORMATION
  Report Type: 
  Country: None (occurrence: None)
  Receive Date: 20101008
  Receipt Date: 20100930
  Transmission Date: 20110411
  Serious: Yes (Hospitalization)
  Sender: FDA-Public Use
  Company Number: US-JNJFOC-20101000514

PATIENT
  Age: 14 Year
  Sex: Female
  Weight: 67.13 kg

DRUGS (2)
  1. TYLENOL COLD HEAD CONGESTION SEVERE COOL BURST DAYTIME [Suspect]
     Indication: HEADACHE
     Dosage: 1 CAPLET ONE TIME
     Route: 048
  2. TYLENOL COLD HEAD CONGESTION SEVERE COOL BURST DAYTIME [Suspect]
     Indication: RHINORRHOEA
     Dosage: 1 CAPLET ONE TIME
     Route: 048

REACTIONS (3)
  - AMNESIA [None]
  - DEPRESSED LEVEL OF CONSCIOUSNESS [None]
  - PRODUCT QUALITY ISSUE [None]
